FAERS Safety Report 16364205 (Version 1)
Quarter: 2019Q2

REPORT INFORMATION
  Report Type: Report from Study
  Country: US (occurrence: US)
  Receive Date: 20190528
  Receipt Date: 20190528
  Transmission Date: 20190711
  Serious: Yes (Death, Other)
  Sender: FDA-Public Use
  Company Number: US-BRISTOL-MYERS SQUIBB COMPANY-BMS-2019-051737

PATIENT
  Age: 37 Year
  Sex: Male
  Weight: 102.1 kg

DRUGS (1)
  1. APIXABAN [Suspect]
     Active Substance: APIXABAN
     Indication: PRODUCT USED FOR UNKNOWN INDICATION
     Dosage: 5 MILLIGRAM, ONCE (UNKNOWN FREQUENCY)
     Route: 048
     Dates: start: 20190425

REACTIONS (6)
  - Palpitations [Unknown]
  - Death [Fatal]
  - Syncope [Unknown]
  - Hypokalaemia [Unknown]
  - Syphilis [Unknown]
  - Blood magnesium decreased [Unknown]

NARRATIVE: CASE EVENT DATE: 20190517
